FAERS Safety Report 8832901 (Version 1)
Quarter: 2012Q4

REPORT INFORMATION
  Report Type: 
  Country: US (occurrence: US)
  Receive Date: 20121010
  Receipt Date: 20121010
  Transmission Date: 20130627
  Serious: No
  Sender: FDA-Public Use
  Company Number: US-009507513-1210USA002236

PATIENT
  Age: 52 Year
  Sex: Female

DRUGS (3)
  1. PEG-INTRON [Suspect]
     Dosage: 80 micrograms per 0.5 millligrams, REDIPEN
     Dates: start: 201206, end: 201209
  2. RIBASPHERE [Suspect]
     Dosage: UNK
  3. TELAPREVIR [Suspect]
     Dosage: UNK

REACTIONS (1)
  - Drug ineffective [Unknown]
